FAERS Safety Report 9156984 (Version 5)
Quarter: 2013Q2

REPORT INFORMATION
  Report Type: Spontaneous
  Country: US (occurrence: US)
  Receive Date: 20130312
  Receipt Date: 20130514
  Transmission Date: 20140414
  Serious: No
  Sender: FDA-Public Use
  Company Number: US-PFIZER INC-2013081797

PATIENT
  Age: 81 Year
  Sex: Female
  Weight: 58.5 kg

DRUGS (5)
  1. PRISTIQ [Suspect]
     Indication: DEPRESSION
     Dosage: 50 MG, DAILY IN MORNING
     Dates: start: 2010
  2. NAMENDA [Concomitant]
     Indication: DEMENTIA
     Dosage: 10 MG, 2X/DAY
  3. GALANTAMINE [Concomitant]
     Indication: DEMENTIA
     Dosage: 24 MG, DAILY AT NIGHT
  4. FOLIC ACID [Concomitant]
     Indication: DEMENTIA
     Dosage: 1 MG, DAILY
  5. ZOCOR [Concomitant]
     Indication: BLOOD CHOLESTEROL INCREASED
     Dosage: UNK

REACTIONS (2)
  - Dysphonia [Recovered/Resolved]
  - Hot flush [Not Recovered/Not Resolved]
